FAERS Safety Report 6740111-9 (Version None)
Quarter: 2010Q2

REPORT INFORMATION
  Report Type: 
  Country: None (occurrence: None)
  Receive Date: 20100521
  Receipt Date: 20100511
  Transmission Date: 20101027
  Serious: Yes (Death)
  Sender: FDA-Public Use
  Company Number: SG-2010-1128

PATIENT
  Sex: Male

DRUGS (2)
  1. VINORELBIN INN (VINORELBINE TARTRATE) SOLUTION FOR INJECTION. [Suspect]
     Indication: NON-SMALL CELL LUNG CANCER
  2. GEMCITABINE HCL [Suspect]
     Indication: NON-SMALL CELL LUNG CANCER
     Dosage: 25 MG;M2 IV
     Route: 042

REACTIONS (1)
  - DEATH [None]
